FAERS Safety Report 18990367 (Version 2)
Quarter: 2021Q2

REPORT INFORMATION
  Report Type: Spontaneous
  Country: DK (occurrence: DK)
  Receive Date: 20210310
  Receipt Date: 20210409
  Transmission Date: 20210717
  Serious: Yes (Other)
  Sender: FDA-Public Use
  Company Number: DK-AUROBINDO-AUR-APL-2021-009552

PATIENT
  Sex: Female
  Weight: 55 kg

DRUGS (7)
  1. OMEPRAZOLE TEVA [Suspect]
     Active Substance: OMEPRAZOLE
     Dosage: 40 MILLIGRAM, DAILY:AT BEDTIME
     Route: 065
     Dates: start: 2010
  2. OZEMPIC [Suspect]
     Active Substance: SEMAGLUTIDE
     Indication: DIABETES MELLITUS
     Dosage: 100 UNITS WEEKLY
     Route: 065
  3. METFORMIN [Concomitant]
     Active Substance: METFORMIN HYDROCHLORIDE
     Indication: PRODUCT USED FOR UNKNOWN INDICATION
     Dosage: UNK
     Route: 065
  4. OMEPRAZOLE TEVA [Suspect]
     Active Substance: OMEPRAZOLE
     Indication: BARRETT^S OESOPHAGUS
     Dosage: 20  MILLIGRAM, DAILY
     Route: 065
  5. TRESIBA [Concomitant]
     Active Substance: INSULIN DEGLUDEC
     Indication: PRODUCT USED FOR UNKNOWN INDICATION
     Dosage: 14 UNITS PER DAY
     Route: 065
  6. OMEPRAZOLE. [Suspect]
     Active Substance: OMEPRAZOLE
     Indication: BARRETT^S OESOPHAGUS
     Dosage: 20 MILLIGRAM, DAILY
     Route: 065
  7. OMEPRAZOLE. [Suspect]
     Active Substance: OMEPRAZOLE
     Dosage: 40 MILLIGRAM, DAILY,AT BEDTIME
     Route: 065
     Dates: start: 2010

REACTIONS (6)
  - Oesophageal ulcer [Unknown]
  - Dizziness [Unknown]
  - Oesophagitis [Unknown]
  - Muscle disorder [Unknown]
  - Muscle spasms [Recovering/Resolving]
  - Pain [Recovering/Resolving]
